FAERS Safety Report 5388860-1 (Version None)
Quarter: 2007Q3

REPORT INFORMATION
  Report Type: 
  Country: None (occurrence: None)
  Receive Date: 20070709
  Receipt Date: 20070625
  Transmission Date: 20080115
  Serious: Yes (Other)
  Sender: FDA-Public Use
  Company Number: THYM-11472

PATIENT

DRUGS (2)
  1. THYMOGLOBULIN [Suspect]
     Indication: DRUG USE FOR UNKNOWN INDICATION
  2. THYMOGLOBULIN [Suspect]

REACTIONS (1)
  - PULMONARY OEDEMA [None]
